FAERS Safety Report 4400974-9 (Version None)
Quarter: 2004Q3

REPORT INFORMATION
  Report Type: 
  Country: None (occurrence: None)
  Receive Date: 20040907
  Receipt Date: 20030829
  Transmission Date: 20050211
  Serious: No
  Sender: FDA-Public Use
  Company Number: US-BRISTOL-MYERS SQUIBB COMPANY-12371449

PATIENT
  Age: 76 Year
  Sex: Male
  Weight: 79 kg

DRUGS (7)
  1. COUMADIN [Suspect]
     Indication: CARDIAC PACEMAKER INSERTION
     Route: 048
     Dates: start: 20021001
  2. KLOR-CON [Suspect]
  3. DIGITEK [Concomitant]
  4. LASIX [Concomitant]
  5. ASPIRIN [Concomitant]
  6. COREG [Concomitant]
  7. SOTALOL HCL [Concomitant]

REACTIONS (3)
  - DIZZINESS [None]
  - INTERNATIONAL NORMALISED RATIO INCREASED [None]
  - STOOL ANALYSIS ABNORMAL [None]
